FAERS Safety Report 8021075-7 (Version None)
Quarter: 2012Q1

REPORT INFORMATION
  Report Type: 
  Country: None (occurrence: None)
  Receive Date: 20120104
  Receipt Date: 20111229
  Transmission Date: 20120608
  Serious: Yes (Other)
  Sender: FDA-Public Use
  Company Number: US-JNJFOC-20111212776

PATIENT
  Age: 8 Year
  Sex: Female

DRUGS (2)
  1. JUNIOR STRENGTH MOTRIN [Suspect]
     Route: 048
  2. JUNIOR STRENGTH MOTRIN [Suspect]
     Indication: PRODUCT USED FOR UNKNOWN INDICATION
     Route: 048

REACTIONS (2)
  - SWELLING FACE [None]
  - OEDEMA MOUTH [None]
